FAERS Safety Report 8363213-2 (Version None)
Quarter: 2012Q2

REPORT INFORMATION
  Report Type: 
  Country: None (occurrence: None)
  Receive Date: 20120516
  Receipt Date: 20120509
  Transmission Date: 20120825
  Serious: Yes (Other)
  Sender: FDA-Public Use
  Company Number: US-PFIZER INC-2012114282

PATIENT
  Sex: Male

DRUGS (2)
  1. GABAPENTIN [Suspect]
     Dosage: 600 MG, UNK
  2. GABAPENTIN [Suspect]
     Dosage: 400 MG, UNK

REACTIONS (4)
  - PALPITATIONS [None]
  - DRUG INEFFECTIVE [None]
  - CARDIAC FLUTTER [None]
  - CHEST PAIN [None]
